FAERS Safety Report 6258453-2 (Version None)
Quarter: 2009Q3

REPORT INFORMATION
  Report Type: 
  Country: None (occurrence: None)
  Receive Date: 20090707
  Receipt Date: 20080926
  Transmission Date: 20100115
  Serious: Yes (Hospitalization)
  Sender: FDA-Public Use
  Company Number: US-CELGENEUS-AZAUS200800196

PATIENT
  Sex: Female
  Weight: 64 kg

DRUGS (7)
  1. VIDAZA [Suspect]
     Indication: MYELODYSPLASTIC SYNDROME
     Route: 051
     Dates: start: 20080630, end: 20080703
  2. ESTROGENS [Concomitant]
  3. DULOXETINE HYDROCHLORIDE [Concomitant]
     Indication: DEPRESSION
  4. RAMIPRIL [Concomitant]
     Indication: HYPERTENSION
  5. ACETAMINOPHEN [Concomitant]
     Indication: OSTEOARTHRITIS
  6. DIPHENOXYLATE HYDROCHLORIDE [Concomitant]
     Indication: IRRITABLE BOWEL SYNDROME
  7. ESOMEPRAZOLE MAGNESIUM [Concomitant]

REACTIONS (1)
  - PLEURISY [None]
